FAERS Safety Report 9620633 (Version 2)
Quarter: 2013Q4

REPORT INFORMATION
  Report Type: Spontaneous
  Country: FR (occurrence: FR)
  Receive Date: 20131015
  Receipt Date: 20131219
  Transmission Date: 20140711
  Serious: Yes (Other)
  Sender: FDA-Public Use
  Company Number: FR-ROCHE-1288204

PATIENT
  Age: 2 Year
  Sex: Female
  Weight: 39 kg

DRUGS (4)
  1. ROACTEMRA [Suspect]
     Indication: JUVENILE IDIOPATHIC ARTHRITIS
     Route: 042
     Dates: start: 201210
  2. ROACTEMRA [Suspect]
     Route: 042
  3. ROACTEMRA [Suspect]
     Route: 042
     Dates: end: 201306
  4. COLCHICINE [Concomitant]
     Indication: FAMILIAL MEDITERRANEAN FEVER
     Route: 048
     Dates: start: 201208

REACTIONS (1)
  - Toxic skin eruption [Recovered/Resolved]
